FAERS Safety Report 13391698 (Version 3)
Quarter: 2017Q2

REPORT INFORMATION
  Report Type: Spontaneous
  Country: US (occurrence: US)
  Receive Date: 20170331
  Receipt Date: 20170621
  Transmission Date: 20170830
  Serious: Yes (Other)
  Sender: FDA-Public Use
  Company Number: US-WEST-WARD PHARMACEUTICALS CORP.-US-H14001-17-00846

PATIENT
  Sex: Female

DRUGS (3)
  1. BOTOX [Concomitant]
     Active Substance: ONABOTULINUMTOXINA
     Indication: PRODUCT USED FOR UNKNOWN INDICATION
     Route: 065
     Dates: start: 20170323
  2. MORPHINE SULFATE. [Suspect]
     Active Substance: MORPHINE SULFATE
     Indication: PELVIC PAIN
     Route: 048
  3. VALIUM [Concomitant]
     Active Substance: DIAZEPAM
     Indication: PRODUCT USED FOR UNKNOWN INDICATION
     Route: 065

REACTIONS (9)
  - Suicidal ideation [Recovered/Resolved]
  - Muscle atrophy [Recovered/Resolved]
  - Intentional product use issue [Unknown]
  - Underdose [Recovered/Resolved]
  - Confusional state [Recovered/Resolved]
  - Asthenia [Recovered/Resolved]
  - Atrophic vulvovaginitis [Recovered/Resolved]
  - Incorrect product storage [Recovered/Resolved]
  - Intentional product misuse [Unknown]

NARRATIVE: CASE EVENT DATE: 2017
